FAERS Safety Report 11425488 (Version 1)
Quarter: 2015Q3

REPORT INFORMATION
  Report Type: Spontaneous
  Country: US (occurrence: US)
  Receive Date: 20150821
  Receipt Date: 20150821
  Transmission Date: 20151125
  Serious: No
  Sender: FDA-Public Use
  Company Number: US-ELI_LILLY_AND_COMPANY-US201005005410

PATIENT
  Age: 68 Year
  Sex: Male

DRUGS (8)
  1. GLUCOVANCE [Concomitant]
     Active Substance: GLYBURIDE\METFORMIN HYDROCHLORIDE
  2. HUMULIN N [Suspect]
     Active Substance: INSULIN HUMAN
     Dosage: 25 U, EACH MORNING
     Dates: start: 201009
  3. HUMULIN N [Suspect]
     Active Substance: INSULIN HUMAN
     Indication: TYPE 1 DIABETES MELLITUS
     Dosage: 25 U, EACH MORNING
     Dates: start: 200912
  4. HUMULIN N [Suspect]
     Active Substance: INSULIN HUMAN
     Dosage: 27 U, EACH EVENING
     Dates: start: 200912
  5. LANTUS [Concomitant]
     Active Substance: INSULIN GLARGINE
  6. HUMULIN N [Suspect]
     Active Substance: INSULIN HUMAN
     Dosage: 27 U, EACH EVENING
     Dates: start: 201009
  7. HUMULIN N [Suspect]
     Active Substance: INSULIN HUMAN
     Dosage: 25 U, EACH MORNING
     Dates: start: 201009
  8. HUMULIN N [Suspect]
     Active Substance: INSULIN HUMAN
     Dosage: 27 U, EACH EVENING
     Dates: start: 201009

REACTIONS (27)
  - Eye pain [Unknown]
  - Malaise [Unknown]
  - Nervousness [Unknown]
  - Adverse drug reaction [Unknown]
  - Oedema peripheral [Not Recovered/Not Resolved]
  - Adverse drug reaction [Unknown]
  - Decreased appetite [Unknown]
  - Diabetic neuropathy [Unknown]
  - Burning sensation [Unknown]
  - Hyperhidrosis [Unknown]
  - Tremor [Unknown]
  - Infection [Unknown]
  - Joint swelling [Unknown]
  - Gait disturbance [Unknown]
  - Mobility decreased [Unknown]
  - Vision blurred [Unknown]
  - Malaise [Unknown]
  - Pain [Unknown]
  - Asthenia [Unknown]
  - Head discomfort [Unknown]
  - Headache [Unknown]
  - Sleep disorder [Unknown]
  - Nasopharyngitis [Unknown]
  - Hypotension [Unknown]
  - Visual acuity reduced [Unknown]
  - Drug dose omission [Unknown]
  - Hypertension [Unknown]

NARRATIVE: CASE EVENT DATE: 200912
